FAERS Safety Report 16296551 (Version 3)
Quarter: 2019Q3

REPORT INFORMATION
  Report Type: Spontaneous
  Country: US (occurrence: US)
  Receive Date: 20190510
  Receipt Date: 20190919
  Transmission Date: 20191004
  Serious: Yes (Other)
  Sender: FDA-Public Use
  Company Number: US-PFIZER INC-2019194815

PATIENT
  Age: 59 Year
  Sex: Male
  Weight: 88 kg

DRUGS (1)
  1. VIAGRA [Suspect]
     Active Substance: SILDENAFIL CITRATE
     Indication: SEXUAL DYSFUNCTION
     Dosage: TAKE 0.5 TO 1 TABLET 30 MIN TO 4 HOURS BEFORE INTERCOURSE
     Route: 048

REACTIONS (5)
  - Injury [Unknown]
  - Condition aggravated [Unknown]
  - Therapeutic response unexpected [Unknown]
  - Dementia Alzheimer^s type [Unknown]
  - Pre-existing condition improved [Unknown]
